FAERS Safety Report 8375250-2 (Version None)
Quarter: 2012Q2

REPORT INFORMATION
  Report Type: 
  Country: None (occurrence: None)
  Receive Date: 20120522
  Receipt Date: 20120515
  Transmission Date: 20120825
  Serious: Yes (Death, Hospitalization)
  Sender: FDA-Public Use
  Company Number: US-BIOGENIDEC-2012BI011396

PATIENT
  Age: 67 Year
  Sex: Male

DRUGS (14)
  1. LANTUS [Concomitant]
     Indication: DIABETES MELLITUS
  2. NICOTINE [Concomitant]
     Route: 061
  3. VITAMIN A [Concomitant]
     Route: 048
  4. TYSABRI [Suspect]
     Indication: CROHN'S DISEASE
     Route: 042
     Dates: start: 20100922, end: 20111114
  5. VITAMIN B-12 [Concomitant]
  6. ASCORBIC ACID [Concomitant]
     Route: 048
  7. ZINC SULFATE [Concomitant]
     Route: 048
  8. PERCOCET [Concomitant]
     Indication: PAIN
     Route: 048
     Dates: start: 20120201
  9. PREDNISONE [Concomitant]
     Indication: CROHN'S DISEASE
  10. VITAMIN E [Concomitant]
     Route: 048
  11. INSULIN [Concomitant]
     Indication: DIABETES MELLITUS
     Route: 058
  12. FINASTERIDE [Concomitant]
     Route: 048
  13. NOVOLOG [Concomitant]
     Indication: DIABETES MELLITUS
     Route: 058
  14. MULTI-VITAMIN [Concomitant]

REACTIONS (2)
  - PNEUMONIA [None]
  - DRY GANGRENE [None]
